FAERS Safety Report 5960472-8 (Version None)
Quarter: 2008Q4

REPORT INFORMATION
  Report Type: 
  Country: None (occurrence: None)
  Receive Date: 20081120
  Receipt Date: 20081112
  Transmission Date: 20090506
  Serious: Yes (Death, Hospitalization)
  Sender: FDA-Public Use
  Company Number: US-BAXTER-2008BH011982

PATIENT
  Age: 41 Year
  Sex: Female

DRUGS (1)
  1. DIANEAL [Suspect]
     Indication: RENAL FAILURE CHRONIC
     Dosage: DOSE UNIT:UNKNOWN
     Route: 033

REACTIONS (6)
  - CARDIAC ARREST [None]
  - FLUID OVERLOAD [None]
  - HYPERTENSION [None]
  - HYPOTENSION [None]
  - NEUROPATHY PERIPHERAL [None]
  - SYSTEMIC LUPUS ERYTHEMATOSUS [None]
